FAERS Safety Report 6135328-0 (Version None)
Quarter: 2009Q1

REPORT INFORMATION
  Report Type: 
  Country: None (occurrence: None)
  Receive Date: 20090327
  Receipt Date: 20090114
  Transmission Date: 20090719
  Serious: Yes (Hospitalization)
  Sender: FDA-Public Use
  Company Number: US-BRISTOL-MYERS SQUIBB COMPANY-14471049

PATIENT
  Age: 74 Year
  Sex: Male
  Weight: 91 kg

DRUGS (1)
  1. SPRYCEL [Suspect]

REACTIONS (1)
  - FEBRILE NEUTROPENIA [None]
